FAERS Safety Report 9787798 (Version 1)
Quarter: 2013Q4

REPORT INFORMATION
  Report Type: Spontaneous
  Country: US (occurrence: US)
  Receive Date: 20131230
  Receipt Date: 20131230
  Transmission Date: 20140711
  Serious: No
  Sender: FDA-Public Use
  Company Number: US-PFIZER INC-2013372717

PATIENT
  Age: 66 Year
  Sex: Female
  Weight: 68.03 kg

DRUGS (4)
  1. LYRICA [Suspect]
     Indication: CARPAL TUNNEL SYNDROME
     Dosage: 50 MG, 2X/DAY
     Dates: start: 201303, end: 201312
  2. LYRICA [Suspect]
     Indication: NEUROPATHY PERIPHERAL
  3. LYRICA [Suspect]
     Indication: FIBROMYALGIA
  4. LOSARTAN [Concomitant]
     Indication: HYPERTENSION
     Dosage: 100 MG, 2X/DAY

REACTIONS (2)
  - Off label use [Unknown]
  - Pain [Not Recovered/Not Resolved]
